FAERS Safety Report 5244870-6 (Version None)
Quarter: 2007Q1

REPORT INFORMATION
  Report Type: 
  Country: None (occurrence: None)
  Receive Date: 20070221
  Receipt Date: 20070221
  Transmission Date: 20070707
  Serious: Yes (Other)
  Sender: FDA-Public Use
  Company Number: None

PATIENT
  Sex: Male
  Weight: 95.82 kg

DRUGS (27)
  1. CRESTOR [Suspect]
     Indication: DYSLIPIDAEMIA
     Dosage: 25 MG PO QD
     Route: 048
     Dates: start: 20060907, end: 20061006
  2. ACETAMINOPHEN [Concomitant]
  3. ALBUTEROL [Concomitant]
  4. ARTIFICIAL TEARS POLYVINYL ALCOHOL [Concomitant]
  5. ASPIRIN [Concomitant]
  6. CARBIDOPA AND LEVODOPA [Concomitant]
  7. CEPHALEXIN [Concomitant]
  8. CLOPIDOGREL BISULFATE [Concomitant]
  9. COVERLET ADHESIVE DRESSING [Concomitant]
  10. ETODOLAC [Concomitant]
  11. EZETIMIBE [Concomitant]
  12. FLUNISOLIDE [Concomitant]
  13. GABAPENTIN [Concomitant]
  14. ACETAMINOPHEN AND HYDROCODONE BITARTRATE [Concomitant]
  15. LEVETIRACETAM [Concomitant]
  16. LOVASTATIN [Concomitant]
  17. METOPROLOL TARTRATE [Concomitant]
  18. NAPROXEN [Concomitant]
  19. OMEPRAZOLE [Concomitant]
  20. OXYCODONE/ACETAMINOPHEN [Concomitant]
  21. POVIDONE IODINE [Concomitant]
  22. RANITIDINE HCL [Concomitant]
  23. ROSUVASTATIN CA [Concomitant]
  24. SERTRALINE HCL [Concomitant]
  25. SIMVASTATIN [Concomitant]
  26. TERAZOSIN HCL [Concomitant]
  27. VALSARTAN [Concomitant]

REACTIONS (1)
  - MUSCLE SPASMS [None]
